FAERS Safety Report 5441397-3 (Version None)
Quarter: 2007Q3

REPORT INFORMATION
  Report Type: 
  Country: None (occurrence: None)
  Receive Date: 20070830
  Receipt Date: 20070830
  Transmission Date: 20080115
  Serious: Yes (Hospitalization)
  Sender: FDA-Public Use
  Company Number: None

PATIENT
  Age: 61 Year
  Sex: Male
  Weight: 94 kg

DRUGS (1)
  1. TPA TISSUE PLASMINOGEN ACTIVATOR [Suspect]
     Indication: ISCHAEMIC STROKE
     Dosage: 9 G BOLUS, 81 G INFUSION
     Dates: start: 20070118

REACTIONS (1)
  - HAEMORRHAGE INTRACRANIAL [None]
